FAERS Safety Report 8887548 (Version 1)
Quarter: 2012Q4

REPORT INFORMATION
  Report Type: Spontaneous
  Country: US (occurrence: None)
  Receive Date: 20121101
  Receipt Date: 20121101
  Transmission Date: 20130627
  Serious: No
  Sender: FDA-Public Use
  Company Number: None

PATIENT
  Sex: Male

DRUGS (1)
  1. PEGASYS [Suspect]
     Indication: HEPATITIS C
     Dosage: 180 MCG WEEKLY SUBCUTANEOUSLY
     Route: 058
     Dates: start: 20121018

REACTIONS (7)
  - Body temperature increased [None]
  - Migraine [None]
  - Vomiting [None]
  - Cognitive disorder [None]
  - Lethargy [None]
  - Epistaxis [None]
  - Decreased appetite [None]
